FAERS Safety Report 7770898-8 (Version None)
Quarter: 2011Q3

REPORT INFORMATION
  Report Type: 
  Country: None (occurrence: None)
  Receive Date: 20110922
  Receipt Date: 20100901
  Transmission Date: 20111222
  Serious: Yes (Other)
  Sender: FDA-Public Use
  Company Number: US-ASTRAZENECA-2009UW16225

PATIENT
  Age: 58 Year
  Sex: Male
  Weight: 127.9 kg

DRUGS (14)
  1. SEROQUEL [Suspect]
     Route: 048
     Dates: start: 20070917
  2. LIPITOR [Concomitant]
     Dosage: DAILY
     Dates: start: 20070917
  3. LEXAPRO [Concomitant]
     Dates: start: 20070917
  4. NEXIUM [Concomitant]
     Dosage: DAILY
     Dates: start: 20070917
  5. CLONIDINE [Concomitant]
     Dosage: TWICE A DAY
     Dates: start: 20070917
  6. SEROQUEL [Suspect]
     Indication: INSOMNIA
     Dosage: 100 MG TO 200 MG
     Route: 048
     Dates: start: 20070901, end: 20090201
  7. LYRICA [Concomitant]
  8. BUSPAR [Concomitant]
     Dates: start: 20070917
  9. SEROQUEL [Suspect]
     Indication: NERVOUSNESS
     Dosage: 100 MG TO 200 MG
     Route: 048
     Dates: start: 20070901, end: 20090201
  10. SEROQUEL [Suspect]
     Route: 048
     Dates: start: 20070917
  11. LISINOPRIL [Concomitant]
     Dosage: DAILY
     Dates: start: 20070917
  12. SEROQUEL [Suspect]
     Indication: DEPRESSION
     Dosage: 100 MG TO 200 MG
     Route: 048
     Dates: start: 20070901, end: 20090201
  13. ZOLOFT [Concomitant]
     Dates: start: 20070917
  14. SEROQUEL [Suspect]
     Route: 048
     Dates: start: 20070917

REACTIONS (3)
  - ADVERSE DRUG REACTION [None]
  - DIABETIC KETOACIDOSIS [None]
  - TYPE 2 DIABETES MELLITUS [None]
